FAERS Safety Report 4295094-0 (Version None)
Quarter: 2004Q1

REPORT INFORMATION
  Report Type: 
  Country: None (occurrence: None)
  Receive Date: 20040216
  Receipt Date: 20031126
  Transmission Date: 20041129
  Serious: Yes (Death)
  Sender: FDA-Public Use
  Company Number: US-GLAXOSMITHKLINE-B0316252A

PATIENT
  Age: 38 Year
  Sex: Female

DRUGS (7)
  1. WELLBUTRIN [Suspect]
     Indication: DEPRESSION
     Route: 048
  2. ETHANOL [Suspect]
     Indication: COMPLETED SUICIDE
     Route: 048
  3. FLUOXETINE [Concomitant]
     Indication: DEPRESSION
     Route: 048
  4. FLURAZEPAM [Concomitant]
     Route: 048
  5. LORAZEPAM [Concomitant]
     Route: 065
  6. IBUPROFEN [Concomitant]
     Route: 065
  7. ALBUTEROL [Concomitant]
     Route: 055

REACTIONS (8)
  - ALCOHOL POISONING [None]
  - COMA [None]
  - COMPLETED SUICIDE [None]
  - DEPRESSED LEVEL OF CONSCIOUSNESS [None]
  - DRUG TOXICITY [None]
  - OVERDOSE [None]
  - PULMONARY CONGESTION [None]
  - PULMONARY OEDEMA [None]
